FAERS Safety Report 6095629-1 (Version None)
Quarter: 2009Q1

REPORT INFORMATION
  Report Type: 
  Country: None (occurrence: None)
  Receive Date: 20090227
  Receipt Date: 20080528
  Transmission Date: 20090719
  Serious: No
  Sender: FDA-Public Use
  Company Number: A0727257A

PATIENT
  Age: 48 Year
  Sex: Female
  Weight: 65.9 kg

DRUGS (2)
  1. LAMICTAL [Suspect]
     Indication: BIPOLAR DISORDER
     Dosage: 100MG PER DAY
     Route: 048
     Dates: start: 20080201, end: 20080507
  2. IBUPROFEN [Concomitant]

REACTIONS (2)
  - ECCHYMOSIS [None]
  - OEDEMA [None]
